FAERS Safety Report 13269397 (Version 1)
Quarter: 2017Q1

REPORT INFORMATION
  Report Type: Spontaneous
  Country: GB (occurrence: GB)
  Receive Date: 20170224
  Receipt Date: 20170224
  Transmission Date: 20170428
  Serious: Yes (Hospitalization)
  Sender: FDA-Public Use
  Company Number: GB-SA-2017SA025326

PATIENT
  Age: 78 Year
  Sex: Female

DRUGS (12)
  1. DOXAZOSIN [Concomitant]
     Active Substance: DOXAZOSIN\DOXAZOSIN MESYLATE
  2. IRBESARTAN. [Suspect]
     Active Substance: IRBESARTAN
     Indication: HYPERTENSION
     Route: 048
     Dates: end: 20170128
  3. CODEINE [Concomitant]
     Active Substance: CODEINE
  4. PARACETAMOL [Concomitant]
     Active Substance: ACETAMINOPHEN
  5. ETORICOXIB [Suspect]
     Active Substance: ETORICOXIB
     Indication: PAIN
     Route: 048
     Dates: start: 20170127, end: 20170128
  6. APIXABAN [Concomitant]
     Active Substance: APIXABAN
  7. INDAPAMIDE. [Suspect]
     Active Substance: INDAPAMIDE
     Route: 048
     Dates: end: 20170128
  8. SIMVASTATIN. [Concomitant]
     Active Substance: SIMVASTATIN
  9. TRIMETHOPRIM. [Concomitant]
     Active Substance: TRIMETHOPRIM
  10. OMEPRAZOLE. [Concomitant]
     Active Substance: OMEPRAZOLE
  11. FERROUS FUMARATE [Concomitant]
     Active Substance: FERROUS FUMARATE
  12. MIRTAZAPINE. [Concomitant]
     Active Substance: MIRTAZAPINE

REACTIONS (1)
  - Acute kidney injury [Recovering/Resolving]

NARRATIVE: CASE EVENT DATE: 20170128
